FAERS Safety Report 14139678 (Version 4)
Quarter: 2020Q1

REPORT INFORMATION
  Report Type: Report from Study
  Country: PA (occurrence: PA)
  Receive Date: 20171029
  Receipt Date: 20200217
  Transmission Date: 20200409
  Serious: Yes (Death, Hospitalization, Other)
  Sender: FDA-Public Use
  Company Number: PHHY2017PA156935

PATIENT
  Sex: Female

DRUGS (1)
  1. AFINITOR [Suspect]
     Active Substance: EVEROLIMUS
     Indication: BREAST CANCER
     Dosage: 10 MG, QD
     Route: 048

REACTIONS (17)
  - Abdominal distension [Unknown]
  - Peripheral swelling [Unknown]
  - Constipation [Unknown]
  - Vomiting [Recovering/Resolving]
  - Haemoglobin decreased [Unknown]
  - Somnolence [Unknown]
  - Drug intolerance [Unknown]
  - Depressed mood [Unknown]
  - Paraplegia [Unknown]
  - Metastases to kidney [Unknown]
  - Nausea [Recovering/Resolving]
  - Metastases to lung [Fatal]
  - Metastases to central nervous system [Fatal]
  - Gait disturbance [Unknown]
  - Urinary retention [Unknown]
  - Malaise [Unknown]
  - Metastases to liver [Fatal]
